FAERS Safety Report 5589659-3 (Version None)
Quarter: 2008Q1

REPORT INFORMATION
  Report Type: 
  Country: None (occurrence: None)
  Receive Date: 20080114
  Receipt Date: 20080103
  Transmission Date: 20080703
  Serious: Yes (Other)
  Sender: FDA-Public Use
  Company Number: B0361633A

PATIENT
  Age: 51 Year
  Sex: Male

DRUGS (4)
  1. PAROXETINE HYDROCHLORIDE [Suspect]
     Route: 065
     Dates: start: 20011002
  2. PROTHIADEN [Concomitant]
     Dates: start: 19921216
  3. PROZAC [Concomitant]
     Dates: start: 20030507
  4. DIAZEPAM [Concomitant]
     Dates: start: 20040824

REACTIONS (6)
  - AGGRESSION [None]
  - BALANCE DISORDER [None]
  - DRUG WITHDRAWAL SYNDROME [None]
  - HYPERHIDROSIS [None]
  - IRRITABILITY [None]
  - PARAESTHESIA [None]
